FAERS Safety Report 4268752-1 (Version None)
Quarter: 2004Q1

REPORT INFORMATION
  Report Type: 
  Country: None (occurrence: None)
  Receive Date: 20040112
  Receipt Date: 20040112
  Transmission Date: 20041129
  Serious: Yes (Life-Threatening, Hospitalization)
  Sender: FDA-Public Use
  Company Number: None

PATIENT
  Age: 70 Year
  Sex: Male
  Weight: 67.3 kg

DRUGS (13)
  1. CISPLATIN [Suspect]
     Indication: NON-SMALL CELL LUNG CANCER STAGE IIIA
     Dosage: 91 MG X 2 IV
     Route: 042
     Dates: start: 20031208, end: 20031215
  2. ETOPOSIDE [Suspect]
     Dosage: 91 MG X 5 DAYS IV
     Route: 042
     Dates: start: 20031208, end: 20031212
  3. RADIATION THERAPY [Concomitant]
  4. GLUCOPHAGE [Concomitant]
  5. PEPCID [Concomitant]
  6. PLAVIX [Concomitant]
  7. EFFEXOR [Concomitant]
  8. MEGACE [Concomitant]
  9. ASPIRIN [Concomitant]
  10. HYDROCHLOROTHIAZIDE [Concomitant]
  11. ATENOLOL [Concomitant]
  12. GLUCOTROL [Concomitant]
  13. LIPTIOR [Concomitant]

REACTIONS (28)
  - ANOREXIA [None]
  - ASTHENIA [None]
  - ATRIAL FIBRILLATION [None]
  - BLOOD PRESSURE SYSTOLIC DECREASED [None]
  - CACHEXIA [None]
  - CARDIAC OUTPUT DECREASED [None]
  - CARDIOMYOPATHY [None]
  - CHEST PAIN [None]
  - CHILLS [None]
  - CORONARY ARTERY ATHEROSCLEROSIS [None]
  - DEHYDRATION [None]
  - DEPRESSED LEVEL OF CONSCIOUSNESS [None]
  - DEPRESSION [None]
  - DYSPNOEA [None]
  - FALL [None]
  - FATIGUE [None]
  - FEBRILE NEUTROPENIA [None]
  - HYPERGLYCAEMIA [None]
  - HYPERKALAEMIA [None]
  - HYPOTENSION [None]
  - LEUKOPENIA [None]
  - OLIGURIA [None]
  - PYREXIA [None]
  - RENAL FAILURE [None]
  - RENAL FAILURE ACUTE [None]
  - SKIN DISCOLOURATION [None]
  - TACHYCARDIA [None]
  - THROMBOCYTOPENIA [None]
